FAERS Safety Report 6453781-X (Version None)
Quarter: 2009Q4

REPORT INFORMATION
  Report Type: 
  Country: None (occurrence: None)
  Receive Date: 20091124
  Receipt Date: 20091120
  Transmission Date: 20100525
  Serious: Yes (Hospitalization, Disabling)
  Sender: FDA-Public Use
  Company Number: US-MYLANLABS-2009S1019187

PATIENT
  Age: 79 Year
  Sex: Female
  Weight: 81.65 kg

DRUGS (17)
  1. FENTANYL CITRATE [Suspect]
     Indication: OSTEOARTHRITIS
     Dosage: Q 72 HOURS
     Route: 062
     Dates: start: 20091002, end: 20091004
  2. FLUCONAZOLE [Concomitant]
  3. BENEFIBER FIBER SUPPLEMENT [Concomitant]
  4. GLIPIZIDE [Concomitant]
     Indication: DIABETES MELLITUS
  5. ROPINIROLE [Concomitant]
     Indication: RESTLESS LEGS SYNDROME
     Route: 048
  6. ASPIRIN [Concomitant]
     Route: 048
  7. ALPRAZOLAM [Concomitant]
     Route: 048
  8. LEXAPRO [Concomitant]
     Indication: DEPRESSION
     Route: 048
  9. BENAZEPRIL HYDROCHLORIDE [Concomitant]
     Indication: BLOOD PRESSURE
     Route: 048
  10. OMEPRAZOLE [Concomitant]
  11. SIMVASTATIN [Concomitant]
     Route: 048
  12. MELOXICAM [Concomitant]
     Route: 048
  13. GLIMEPIRIDE [Concomitant]
     Route: 048
  14. VERAPAMIL [Concomitant]
     Route: 048
  15. LASIX [Concomitant]
     Route: 048
  16. DIOVAN [Concomitant]
     Route: 048
  17. NIASPAN [Concomitant]
     Route: 048

REACTIONS (10)
  - ABDOMINAL PAIN UPPER [None]
  - ANURIA [None]
  - ASTHENIA [None]
  - DYSSTASIA [None]
  - FEELING ABNORMAL [None]
  - GASTRIC ULCER [None]
  - HYPOAESTHESIA [None]
  - INTESTINAL FUNCTIONAL DISORDER [None]
  - MOVEMENT DISORDER [None]
  - SENSORY LOSS [None]
